FAERS Safety Report 10453162 (Version 3)
Quarter: 2014Q4

REPORT INFORMATION
  Report Type: Report from Study
  Country: JP (occurrence: JP)
  Receive Date: 20140915
  Receipt Date: 20141023
  Transmission Date: 20150528
  Serious: Yes (Other)
  Sender: FDA-Public Use
  Company Number: JP-GLAXOSMITHKLINE-B0974957A

PATIENT
  Age: 83 Year
  Sex: Male
  Weight: 65 kg

DRUGS (6)
  1. CHINESE MEDICINE [Concomitant]
     Active Substance: UNSPECIFIED INGREDIENT
     Route: 048
     Dates: start: 20130826
  2. PICOBEN [Concomitant]
     Route: 048
     Dates: start: 20131028
  3. ELTROMBOPAG [Suspect]
     Active Substance: ELTROMBOPAG
     Indication: IMMUNE THROMBOCYTOPENIC PURPURA
     Route: 048
     Dates: start: 20130603
  4. MAGMITT [Concomitant]
     Active Substance: MAGNESIUM OXIDE
     Route: 048
     Dates: end: 20130819
  5. TRANSAMIN [Concomitant]
     Active Substance: TRANEXAMIC ACID
     Route: 048
     Dates: start: 20130902
  6. NORVASC [Concomitant]
     Active Substance: AMLODIPINE BESYLATE
     Route: 048
     Dates: start: 20131028

REACTIONS (4)
  - Hypokalaemia [Recovered/Resolved]
  - Urinary tract infection [Recovered/Resolved]
  - Enterocolitis [Recovered/Resolved]
  - Bronchitis [Recovering/Resolving]

NARRATIVE: CASE EVENT DATE: 20130701
